FAERS Safety Report 22282494 (Version 1)
Quarter: 2023Q2

REPORT INFORMATION
  Report Type: Spontaneous
  Country: US (occurrence: US)
  Receive Date: 20230504
  Receipt Date: 20230504
  Transmission Date: 20230721
  Serious: Yes (Other)
  Sender: FDA-Public Use
  Company Number: US-ASTELLAS-2023US013585

PATIENT
  Age: 62 Year
  Sex: Male

DRUGS (5)
  1. LEXISCAN [Suspect]
     Active Substance: REGADENOSON
     Indication: Cardiac stress test
     Dosage: UNK UNK, OTHER (SINGLE ADMINISTRATION)
     Route: 065
     Dates: start: 20230427, end: 20230427
  2. LEXISCAN [Suspect]
     Active Substance: REGADENOSON
     Indication: Cardiac stress test
     Dosage: UNK UNK, OTHER (SINGLE ADMINISTRATION)
     Route: 065
     Dates: start: 20230427, end: 20230427
  3. LEXISCAN [Suspect]
     Active Substance: REGADENOSON
     Indication: Cardiac stress test
     Dosage: UNK UNK, OTHER (SINGLE ADMINISTRATION)
     Route: 065
     Dates: start: 20230427, end: 20230427
  4. LEXISCAN [Suspect]
     Active Substance: REGADENOSON
     Indication: Cardiac stress test
     Dosage: UNK UNK, OTHER (SINGLE ADMINISTRATION)
     Route: 065
     Dates: start: 20230427, end: 20230427
  5. NITROGLYCERIN [Concomitant]
     Active Substance: NITROGLYCERIN
     Indication: Chest pain
     Dosage: UNK UNK, UNKNOWN FREQ. (ON OCCASION)
     Route: 065

REACTIONS (6)
  - Facial paralysis [Recovered/Resolved]
  - Aphasia [Recovered/Resolved]
  - Dysarthria [Recovered/Resolved]
  - Hypoaesthesia [Recovered/Resolved]
  - Tinnitus [Recovered/Resolved]
  - Sensory disturbance [Recovered/Resolved]

NARRATIVE: CASE EVENT DATE: 20230427
